FAERS Safety Report 8875670 (Version 1)
Quarter: 2012Q4

REPORT INFORMATION
  Report Type: 
  Country: CH (occurrence: CH)
  Receive Date: 20121030
  Receipt Date: 20121030
  Transmission Date: 20130627
  Serious: Yes (Life-Threatening, Hospitalization, Congenital Anomaly)
  Sender: FDA-Public Use
  Company Number: CH-ABBOTT-12P-151-1000254-00

PATIENT
  Sex: Male

DRUGS (4)
  1. KALETRA TABLETS 200/50 [Suspect]
     Indication: MATERNAL EXPOSURE TIMING UNSPECIFIED
     Route: 064
  2. TRIZIVIR [Suspect]
     Indication: MATERNAL EXPOSURE TIMING UNSPECIFIED
     Route: 064
  3. TRUVADA [Suspect]
     Indication: MATERNAL EXPOSURE TIMING UNSPECIFIED
     Route: 064
  4. PODOMEXEF [Suspect]
     Indication: MATERNAL EXPOSURE TIMING UNSPECIFIED
     Route: 064

REACTIONS (15)
  - Apgar score low [Recovered/Resolved]
  - Neonatal asphyxia [Recovered/Resolved]
  - Lactic acidosis [Recovered/Resolved]
  - Small for dates baby [Unknown]
  - Renal failure [Recovering/Resolving]
  - Congenital hearing disorder [Not Recovered/Not Resolved]
  - Cytogenetic abnormality [Not Recovered/Not Resolved]
  - Renal aplasia [Not Recovered/Not Resolved]
  - Dysmorphism [Not Recovered/Not Resolved]
  - Torticollis [Not Recovered/Not Resolved]
  - Hypophosphataemia [Recovering/Resolving]
  - Proteinuria [Recovering/Resolving]
  - Foetal exposure during pregnancy [Unknown]
  - Wolf-Hirschhorn syndrome [Unknown]
  - Mitochondrial toxicity [Unknown]
